FAERS Safety Report 22355495 (Version 1)
Quarter: 2023Q2

REPORT INFORMATION
  Report Type: Spontaneous
  Country: US (occurrence: US)
  Receive Date: 20230523
  Receipt Date: 20230523
  Transmission Date: 20230721
  Serious: Yes (Other)
  Sender: FDA-Public Use
  Company Number: US-JUBILANT CADISTA PHARMACEUTICALS-2023JUB00201

PATIENT
  Sex: Female

DRUGS (2)
  1. PREDNISONE [Suspect]
     Active Substance: PREDNISONE
     Indication: Asthma
     Dosage: 10 MG, 1X/DAY, INTERMITTENT USE OF DAILY PREDNISONE 5-10 MG FOR SEVERAL YEARS
     Route: 048
  2. PREDNISONE [Suspect]
     Active Substance: PREDNISONE
     Indication: Asthma
     Dosage: 5 MG, 1X/DAY, INTERMITTENT USE OF DAILY PREDNISONE 5-10 MG FOR SEVERAL YEARS
     Route: 048

REACTIONS (1)
  - Osteonecrosis [Unknown]
